FAERS Safety Report 12740125 (Version 2)
Quarter: 2016Q3

REPORT INFORMATION
  Report Type: Report from Study
  Country: US (occurrence: US)
  Receive Date: 20160913
  Receipt Date: 20160926
  Transmission Date: 20161109
  Serious: Yes (Death, Hospitalization)
  Sender: FDA-Public Use
  Company Number: US-ACTELION-A-NJ2016-142216

PATIENT
  Age: 51 Year
  Sex: Female

DRUGS (10)
  1. MULTIVITAMIN [Concomitant]
     Active Substance: VITAMINS
     Dosage: UNK, QD
  2. FAMOTIDINE. [Concomitant]
     Active Substance: FAMOTIDINE
  3. TRACLEER [Suspect]
     Active Substance: BOSENTAN
     Indication: PULMONARY ARTERIAL HYPERTENSION
     Dosage: 62.5 MG, BID
     Route: 048
  4. IRON [Concomitant]
     Active Substance: IRON
     Dosage: 220 MG, UNK
  5. POTASSIUM CHLORIDE. [Concomitant]
     Active Substance: POTASSIUM CHLORIDE
     Dosage: 8 MEQ, MON-WED-FRI
  6. DOXEPIN [Concomitant]
     Active Substance: DOXEPIN
     Dosage: 20 MG, UNK
  7. LEVALBUTEROL. [Concomitant]
     Active Substance: LEVALBUTEROL
     Dosage: 1.25 MG, UNK
  8. PULMICORT TURBUHALER [Concomitant]
     Active Substance: BUDESONIDE
     Dosage: 0.5 MG, BID
  9. HYDROCHLOROTHIAZIDE. [Concomitant]
     Active Substance: HYDROCHLOROTHIAZIDE
     Dosage: 25 MG, QD
  10. SILDENAFIL. [Concomitant]
     Active Substance: SILDENAFIL
     Dosage: 20 MG, TID

REACTIONS (4)
  - Hypoxia [Fatal]
  - Secretion discharge [Not Recovered/Not Resolved]
  - Acute respiratory failure [Fatal]
  - Infection [Not Recovered/Not Resolved]
